FAERS Safety Report 8484726-9 (Version None)
Quarter: 2012Q3

REPORT INFORMATION
  Report Type: 
  Country: None (occurrence: None)
  Receive Date: 20120703
  Receipt Date: 20120605
  Transmission Date: 20120928
  Serious: No
  Sender: FDA-Public Use
  Company Number: US-TEVA-341511USA

PATIENT
  Sex: Male
  Weight: 70.37 kg

DRUGS (4)
  1. ZOLPIDEM TARTRATE [Concomitant]
     Route: 048
  2. CARBAMAZEPINE [Concomitant]
     Dosage: 400 MILLIGRAM;
     Route: 048
  3. NUVIGIL [Suspect]
     Indication: FATIGUE
     Route: 048
     Dates: start: 20120521, end: 20120602
  4. LORAZEPAM [Concomitant]
     Route: 048

REACTIONS (2)
  - DYSPNOEA [None]
  - OFF LABEL USE [None]
